FAERS Safety Report 8037837-6 (Version None)
Quarter: 2012Q1

REPORT INFORMATION
  Report Type: 
  Country: None (occurrence: None)
  Receive Date: 20120111
  Receipt Date: 20111227
  Transmission Date: 20120608
  Serious: Yes (Other)
  Sender: FDA-Public Use
  Company Number: PHHY2011BR112593

PATIENT
  Sex: Male

DRUGS (1)
  1. TRILEPTAL [Suspect]
     Dates: start: 20090101

REACTIONS (7)
  - CONVULSION [None]
  - NEUROCYSTICERCOSIS [None]
  - SLEEP DISORDER [None]
  - FATIGUE [None]
  - BLOOD SODIUM DECREASED [None]
  - PANIC DISORDER [None]
  - MALAISE [None]
